FAERS Safety Report 18023101 (Version 3)
Quarter: 2021Q3

REPORT INFORMATION
  Report Type: Report from Study
  Country: US (occurrence: US)
  Receive Date: 20200715
  Receipt Date: 20210726
  Transmission Date: 20211014
  Serious: No
  Sender: FDA-Public Use
  Company Number: US-B.I. PHARMACEUTICALS,INC./RIDGEFIELD-2020-US-030585

PATIENT
  Age: 83 Year
  Sex: Female

DRUGS (3)
  1. OFEV [Suspect]
     Active Substance: NINTEDANIB
     Indication: INTERSTITIAL LUNG DISEASE
  2. OFEV [Suspect]
     Active Substance: NINTEDANIB
     Indication: RHEUMATOID ARTHRITIS
     Dosage: 100 MG TWICE A DAY
     Route: 048
     Dates: start: 20201210
  3. OFEV [Suspect]
     Active Substance: NINTEDANIB
     Indication: IDIOPATHIC PULMONARY FIBROSIS
     Dosage: OFEV DOSE 100MG DAILY
     Route: 048
     Dates: start: 20200520

REACTIONS (22)
  - Abdominal discomfort [Unknown]
  - Decreased appetite [Unknown]
  - Diarrhoea [Unknown]
  - Nasal dryness [Unknown]
  - Rash [Unknown]
  - Abdominal discomfort [Not Recovered/Not Resolved]
  - Trismus [Unknown]
  - Eructation [Unknown]
  - Dysphonia [Unknown]
  - Dry mouth [Unknown]
  - Headache [Unknown]
  - Weight decreased [Unknown]
  - Flatulence [Unknown]
  - Cough [Unknown]
  - Gastric disorder [Unknown]
  - Pain [Unknown]
  - Throat clearing [Unknown]
  - Fatigue [Not Recovered/Not Resolved]
  - Facial pain [Unknown]
  - Ear pain [Unknown]
  - Diarrhoea [Not Recovered/Not Resolved]
  - Nausea [Not Recovered/Not Resolved]

NARRATIVE: CASE EVENT DATE: 2020
